FAERS Safety Report 19474260 (Version 1)
Quarter: 2021Q2

REPORT INFORMATION
  Report Type: Spontaneous
  Country: JP (occurrence: JP)
  Receive Date: 20210630
  Receipt Date: 20210630
  Transmission Date: 20210717
  Serious: Yes (Other)
  Sender: FDA-Public Use
  Company Number: JP-ORGANON-O2106JPN000375J

PATIENT
  Sex: Female

DRUGS (1)
  1. NU?LOTAN TABLETS 50MG [Suspect]
     Active Substance: LOSARTAN
     Indication: NEPHROPATHY
     Dosage: UNK
     Route: 048

REACTIONS (8)
  - Urinary occult blood [Unknown]
  - Hypotension [Recovering/Resolving]
  - Dysstasia [Recovering/Resolving]
  - Proteinuria [Unknown]
  - Product prescribing issue [Unknown]
  - Nephrotic syndrome [Recovering/Resolving]
  - Dizziness [Recovering/Resolving]
  - Asthenia [Recovering/Resolving]
